FAERS Safety Report 23713225 (Version 1)
Quarter: 2024Q2

REPORT INFORMATION
  Report Type: Spontaneous
  Country: US (occurrence: US)
  Receive Date: 20240405
  Receipt Date: 20240405
  Transmission Date: 20240716
  Serious: No
  Sender: FDA-Public Use
  Company Number: US-BAYER-2024A046610

PATIENT
  Sex: Female

DRUGS (3)
  1. ADEMPAS [Suspect]
     Active Substance: RIOCIGUAT
     Indication: Pulmonary arterial hypertension
  2. OPSUMIT [Suspect]
     Active Substance: MACITENTAN
  3. TYVASO DPI [Suspect]
     Active Substance: TREPROSTINIL

REACTIONS (2)
  - Product administration error [None]
  - Product dose omission in error [None]
